FAERS Safety Report 5874000-9 (Version None)
Quarter: 2008Q3

REPORT INFORMATION
  Report Type: 
  Country: None (occurrence: None)
  Receive Date: 20080908
  Receipt Date: 20080825
  Transmission Date: 20090109
  Serious: Yes (Other)
  Sender: FDA-Public Use
  Company Number: IL-ELI_LILLY_AND_COMPANY-IL200808000396

PATIENT
  Age: 25 Year
  Sex: Male

DRUGS (1)
  1. ZYPREXA [Suspect]
     Indication: ACUTE PSYCHOSIS
     Dosage: 10 MG, UNK
     Route: 030
     Dates: start: 20080601

REACTIONS (6)
  - ANAPHYLACTIC REACTION [None]
  - BRADYARRHYTHMIA [None]
  - HYPOTENSION [None]
  - PALLOR [None]
  - STUPOR [None]
  - SYNCOPE [None]
